FAERS Safety Report 9918917 (Version 2)
Quarter: 2014Q1

REPORT INFORMATION
  Report Type: Spontaneous
  Country: US (occurrence: US)
  Receive Date: 20140224
  Receipt Date: 20140327
  Transmission Date: 20141002
  Serious: No
  Sender: FDA-Public Use
  Company Number: US-PFIZER INC-2014048950

PATIENT
  Age: 61 Year
  Sex: Female

DRUGS (2)
  1. XELJANZ [Suspect]
     Indication: RHEUMATOID ARTHRITIS
     Dosage: 5 MG, 2X/DAY
     Route: 048
     Dates: start: 201310
  2. METHOTREXATE SODIUM [Suspect]
     Dosage: UNK

REACTIONS (6)
  - Rash [Unknown]
  - Swelling face [Unknown]
  - Rash erythematous [Unknown]
  - Agitation [Unknown]
  - Nausea [Unknown]
  - Joint swelling [Unknown]
